FAERS Safety Report 13138782 (Version 2)
Quarter: 2017Q1

REPORT INFORMATION
  Report Type: Spontaneous
  Country: US (occurrence: US)
  Receive Date: 20170123
  Receipt Date: 20170324
  Transmission Date: 20170428
  Serious: No
  Sender: FDA-Public Use
  Company Number: US-PFIZER INC-2017022164

PATIENT
  Age: 62 Year
  Sex: Female

DRUGS (1)
  1. IBRANCE [Suspect]
     Active Substance: PALBOCICLIB
     Dosage: 125 MG, CYCLIC (EVERY DAY FOR 21 DAYS EVERY 28 DAYS)
     Route: 048
     Dates: start: 201608

REACTIONS (4)
  - Arthralgia [Unknown]
  - Sciatica [Unknown]
  - Alopecia [Unknown]
  - Pain in extremity [Unknown]
